FAERS Safety Report 8457306-9 (Version None)
Quarter: 2012Q2

REPORT INFORMATION
  Report Type: 
  Country: None (occurrence: None)
  Receive Date: 20120621
  Receipt Date: 20120606
  Transmission Date: 20120825
  Serious: No
  Sender: FDA-Public Use
  Company Number: US-ASTRAZENECA-2012SE38026

PATIENT
  Age: 87 Year
  Sex: Male
  Weight: 102.1 kg

DRUGS (11)
  1. OMEPRAZOLE [Suspect]
     Route: 048
  2. COUMADIN [Concomitant]
  3. LOSARTAN POTASSIUM [Concomitant]
  4. ZOCOR [Concomitant]
  5. AMARYL [Concomitant]
  6. FLUNISOLIDE [Concomitant]
  7. FML [Concomitant]
  8. SYMBICORT [Suspect]
     Dosage: 160/4.5 MCG, TWO TIMES A DAY
     Route: 055
     Dates: start: 20111201, end: 20120501
  9. GLUCOTROL [Concomitant]
  10. LASIX [Concomitant]
  11. AMLODIPINE BESYLATE AND BENAZEPRIL HCL [Concomitant]

REACTIONS (1)
  - DYSPNOEA [None]
